FAERS Safety Report 25419390 (Version 1)
Quarter: 2025Q2

REPORT INFORMATION
  Report Type: Report from Study
  Country: JP (occurrence: JP)
  Receive Date: 20250610
  Receipt Date: 20250610
  Transmission Date: 20250717
  Serious: Yes (Death)
  Sender: PFIZER
  Company Number: JP-PFIZER INC-2014188501

PATIENT
  Age: 76 Year
  Sex: Male

DRUGS (8)
  1. VYNDAQEL [Suspect]
     Active Substance: TAFAMIDIS MEGLUMINE
     Indication: Hereditary neuropathic amyloidosis
     Dosage: 20 MG, DAILY
     Route: 048
     Dates: start: 20140414, end: 20140602
  2. URSO [Concomitant]
     Active Substance: URSODIOL
     Dosage: 100 MG, 3X/DAY
     Route: 048
     Dates: start: 20100803
  3. GABAPENTIN [Concomitant]
     Active Substance: GABAPENTIN
     Dosage: 400 MG, 2X/DAY
     Route: 048
     Dates: start: 20100805
  4. DROXIDOPA [Concomitant]
     Active Substance: DROXIDOPA
     Dosage: 100 MG, 2X/DAY
     Route: 048
     Dates: start: 20111227
  5. NEUROTROPIN [Concomitant]
     Active Substance: NEUROTROPIN
     Dosage: 2 TABLETS, 2X/DAY
     Route: 048
     Dates: start: 20121225
  6. LYRICA [Concomitant]
     Active Substance: PREGABALIN
     Dosage: 150 MG, 2X/DAY
     Route: 048
     Dates: start: 20130219
  7. LEVOTHYROXINE [Concomitant]
     Active Substance: LEVOTHYROXINE
     Dosage: 6.25 UG, 1X/DAY
     Route: 048
     Dates: start: 20140520
  8. LANSOPRAZOLE [Concomitant]
     Active Substance: LANSOPRAZOLE
     Indication: Chronic gastritis
     Dosage: 30 MG, 1X/DAY
     Route: 048

REACTIONS (2)
  - Hereditary neuropathic amyloidosis [Fatal]
  - Disease progression [Fatal]

NARRATIVE: CASE EVENT DATE: 20140601
